FAERS Safety Report 14695689 (Version 2)
Quarter: 2018Q2

REPORT INFORMATION
  Report Type: Report from Study
  Country: US (occurrence: US)
  Receive Date: 20180329
  Receipt Date: 20180409
  Transmission Date: 20180711
  Serious: Yes (Congenital Anomaly)
  Sender: FDA-Public Use
  Company Number: US-GILEAD-2018-0329864

PATIENT
  Age: 0 Year
  Sex: Male
  Weight: 3.13 kg

DRUGS (3)
  1. PRENATAL VITAMINS                  /02014401/ [Suspect]
     Active Substance: VITAMINS
     Indication: VITAMIN SUPPLEMENTATION
     Route: 064
  2. EMTRICITABINE/TENOFOVIR DISOPROXIL FUMARATE [Suspect]
     Active Substance: EMTRICITABINE\TENOFOVIR DISOPROXIL FUMARATE
     Indication: HIV INFECTION
     Dosage: 1 DF, QD
     Route: 064
     Dates: start: 20170515, end: 20180313
  3. DOLUTEGRAVIR [Suspect]
     Active Substance: DOLUTEGRAVIR
     Indication: HIV INFECTION
     Dosage: 1 DF, QD
     Route: 064
     Dates: start: 20170515, end: 20180313

REACTIONS (2)
  - Foetal exposure during pregnancy [Recovered/Resolved]
  - Brain stem auditory evoked response abnormal [Unknown]

NARRATIVE: CASE EVENT DATE: 20170515
